FAERS Safety Report 18889087 (Version 1)
Quarter: 2021Q1

REPORT INFORMATION
  Report Type: Report from Study
  Country: US (occurrence: US)
  Receive Date: 20210212
  Receipt Date: 20210212
  Transmission Date: 20210420
  Serious: Yes (Hospitalization)
  Sender: FDA-Public Use
  Company Number: US-ASTRAZENECA-2021A035058

PATIENT
  Sex: Male

DRUGS (13)
  1. FLOVENT [Concomitant]
     Active Substance: FLUTICASONE PROPIONATE
  2. TRIAMCINOLONE [Concomitant]
     Active Substance: TRIAMCINOLONE
  3. GABAPENTIN. [Concomitant]
     Active Substance: GABAPENTIN
  4. SODIUM CHLORIDE. [Concomitant]
     Active Substance: SODIUM CHLORIDE
  5. VITAMIN D [Concomitant]
     Active Substance: VITAMIN D NOS
  6. RANITIDINE. [Concomitant]
     Active Substance: RANITIDINE
  7. DESONIDE. [Concomitant]
     Active Substance: DESONIDE
  8. TOPICORT [Concomitant]
     Active Substance: DESOXIMETASONE
  9. ALBUTEROL. [Concomitant]
     Active Substance: ALBUTEROL
  10. HYDROXYZINE [Concomitant]
     Active Substance: HYDROXYZINE HYDROCHLORIDE
  11. KOSELUGO [Suspect]
     Active Substance: SELUMETINIB
     Indication: ILL-DEFINED DISORDER
     Route: 048
     Dates: start: 20200514
  12. MOMETASONE [Concomitant]
     Active Substance: MOMETASONE
  13. LORATADINE. [Concomitant]
     Active Substance: LORATADINE

REACTIONS (2)
  - Bronchitis [Unknown]
  - Pharyngitis streptococcal [Unknown]
